FAERS Safety Report 11934864 (Version 1)
Quarter: 2016Q1

REPORT INFORMATION
  Report Type: Spontaneous
  Country: JP (occurrence: JP)
  Receive Date: 20160121
  Receipt Date: 20160121
  Transmission Date: 20160526
  Serious: Yes (Life-Threatening)
  Sender: FDA-Public Use
  Company Number: PHBS1998JP00255

PATIENT
  Age: 52 Year
  Sex: Female

DRUGS (6)
  1. EUGLUCON (GLIBENCLAMIDE) [Concomitant]
     Active Substance: GLYBURIDE
  2. CLEAMINE-A (CLEAMINE) [Suspect]
     Active Substance: CAFFEINE\ERGOTAMINE TARTRATE\PROPYPHENAZONE
     Dosage: UNSPECIFIED
     Route: 048
  3. DIHYDERGOT (DIHYDROERGOTAMINE MESILATE) [Suspect]
     Active Substance: DIHYDROERGOTAMINE MESYLATE
     Route: 048
     Dates: start: 19980804, end: 19980809
  4. NORVASC [Concomitant]
     Active Substance: AMLODIPINE BESYLATE
  5. CALSMIN (POTASSIUM NITRAZEPATE) [Concomitant]
  6. VOLTAROL [Suspect]
     Active Substance: DICLOFENAC SODIUM
     Indication: HEADACHE
     Route: 048
     Dates: start: 19980804, end: 19980809

REACTIONS (1)
  - Vasculitis [Unknown]

NARRATIVE: CASE EVENT DATE: 19980809
